FAERS Safety Report 14723551 (Version 1)
Quarter: 2018Q2

REPORT INFORMATION
  Report Type: Spontaneous
  Country: US (occurrence: US)
  Receive Date: 20180405
  Receipt Date: 20180405
  Transmission Date: 20180711
  Serious: No
  Sender: FDA-Public Use
  Company Number: US-LYNE LABORATORIES INC.-2045176

PATIENT
  Age: 56 Year
  Sex: Female

DRUGS (1)
  1. ERYTHROMYCIN AND BENZOYL PEROXIDE [Suspect]
     Active Substance: BENZOYL PEROXIDE\ERYTHROMYCIN
     Indication: ACNE
     Route: 061
     Dates: start: 20171215

REACTIONS (2)
  - Burning sensation [Unknown]
  - Application site haemorrhage [None]

NARRATIVE: CASE EVENT DATE: 20171215
